FAERS Safety Report 15723597 (Version 1)
Quarter: 2018Q4

REPORT INFORMATION
  Report Type: Spontaneous
  Country: BR (occurrence: BR)
  Receive Date: 20181214
  Receipt Date: 20181214
  Transmission Date: 20190205
  Serious: Yes (Other)
  Sender: FDA-Public Use
  Company Number: BR-SA-2018SA313330

PATIENT
  Sex: Female
  Weight: 60 kg

DRUGS (3)
  1. FOLIC ACID. [Concomitant]
     Active Substance: FOLIC ACID
     Indication: SUPPLEMENTATION THERAPY
     Dosage: 1 DF, QD
     Route: 048
     Dates: start: 20180814
  2. ACETYLSALICYLIC ACID [Suspect]
     Active Substance: ASPIRIN
     Indication: HYPERCOAGULATION
     Dosage: 1 DF, QD
     Route: 048
     Dates: start: 20180814
  3. CLEXANE [Suspect]
     Active Substance: ENOXAPARIN SODIUM
     Indication: HYPERCOAGULATION
     Dosage: 1 SYRINGE / DAILY
     Route: 058
     Dates: start: 20180814

REACTIONS (4)
  - Placenta praevia [Unknown]
  - Exposure during pregnancy [Unknown]
  - Product use issue [Unknown]
  - Off label use [Unknown]
